FAERS Safety Report 13702599 (Version 5)
Quarter: 2018Q3

REPORT INFORMATION
  Report Type: Report from Study
  Country: FR (occurrence: FR)
  Receive Date: 20170629
  Receipt Date: 20180806
  Transmission Date: 20181010
  Serious: Yes (Hospitalization)
  Sender: FDA-Public Use
  Company Number: PHHO2017FR009590

PATIENT
  Age: 73 Year
  Sex: Female

DRUGS (8)
  1. LDE 225 [Suspect]
     Active Substance: ERISMODEGIB
     Dosage: 400 MG, QD
     Route: 048
     Dates: start: 20170612, end: 20170702
  2. AZACITIDINE. [Suspect]
     Active Substance: AZACITIDINE
     Dosage: 75 MG/M2, UNK
     Route: 058
     Dates: start: 20170612, end: 20170619
  3. DIACTANE [Concomitant]
     Indication: PRODUCT USED FOR UNKNOWN INDICATION
     Dosage: 200 MG, UNK
     Route: 065
  4. AZACITIDINE. [Suspect]
     Active Substance: AZACITIDINE
     Indication: MYELODYSPLASTIC SYNDROME
     Dosage: 75 MG/M2, UNK
     Route: 058
     Dates: start: 20170227, end: 20170305
  5. TRIFLUCAN [Concomitant]
     Active Substance: FLUCONAZOLE
     Indication: ABDOMINAL PAIN UPPER
     Dosage: 100 MG, 21 DAY
     Route: 048
     Dates: start: 20170701
  6. LDE 225 [Suspect]
     Active Substance: ERISMODEGIB
     Indication: MYELODYSPLASTIC SYNDROME
     Dosage: 200 MG, QD
     Route: 048
     Dates: start: 20170227, end: 20170301
  7. LERCAPRESS [Concomitant]
     Active Substance: ENALAPRIL MALEATE\LERCANIDIPINE HYDROCHLORIDE
     Indication: HYPERTENSION
     Dosage: UNK
     Route: 065
  8. OMEPRAZOLE. [Concomitant]
     Active Substance: OMEPRAZOLE
     Indication: ABDOMINAL PAIN UPPER
     Dosage: 40 MG, UNK
     Route: 048
     Dates: start: 201705

REACTIONS (3)
  - Febrile neutropenia [Recovered/Resolved]
  - Sepsis [Recovered/Resolved]
  - Cytopenia [Recovered/Resolved]

NARRATIVE: CASE EVENT DATE: 20170618
